FAERS Safety Report 8317922-1 (Version None)
Quarter: 2012Q2

REPORT INFORMATION
  Report Type: 
  Country: None (occurrence: None)
  Receive Date: 20120427
  Receipt Date: 20120419
  Transmission Date: 20120825
  Serious: Yes (Other)
  Sender: FDA-Public Use
  Company Number: US-US-EMD SERONO, INC.-7127382

PATIENT
  Sex: Female

DRUGS (1)
  1. REBIF [Suspect]
     Indication: MULTIPLE SCLEROSIS
     Route: 058
     Dates: start: 20050502

REACTIONS (6)
  - INJECTION SITE NODULE [None]
  - WEIGHT DECREASED [None]
  - MUSCLE SPASMS [None]
  - BLADDER DISORDER [None]
  - INJECTION SITE HAEMATOMA [None]
  - CEREBROVASCULAR ACCIDENT [None]
